FAERS Safety Report 6644011-4 (Version None)
Quarter: 2010Q1

REPORT INFORMATION
  Report Type: 
  Country: None (occurrence: None)
  Receive Date: 20100322
  Receipt Date: 20100309
  Transmission Date: 20100710
  Serious: Yes (Death, Congenital Anomaly, Other)
  Sender: FDA-Public Use
  Company Number: CH-ELI_LILLY_AND_COMPANY-CH201003002965

PATIENT

DRUGS (2)
  1. FLUCTINE [Suspect]
     Indication: DEPRESSION
     Dosage: 20 MG, 3/D
     Route: 064
     Dates: start: 20090214
  2. METHADONE HCL [Concomitant]
     Indication: DRUG ABUSE
     Dosage: 50 MG, DAILY (1/D)
     Route: 064

REACTIONS (5)
  - CYSTIC LYMPHANGIOMA [None]
  - DRUG EXPOSURE DURING PREGNANCY [None]
  - EXOMPHALOS [None]
  - INTRA-UTERINE DEATH [None]
  - NEURAL TUBE DEFECT [None]
